FAERS Safety Report 7986262-2 (Version None)
Quarter: 2011Q4

REPORT INFORMATION
  Report Type: 
  Country: None (occurrence: None)
  Receive Date: 20111216
  Receipt Date: 20110207
  Transmission Date: 20120403
  Serious: No
  Sender: FDA-Public Use
  Company Number: US-BRISTOL-MYERS SQUIBB COMPANY-15500176

PATIENT
  Age: 50 Year
  Sex: Female

DRUGS (2)
  1. ABILIFY [Suspect]
     Indication: MAJOR DEPRESSION
     Dosage: DOSE REDUCED AND THEN WITHDRAWN 01OCT10 5MG TO 10MG/D MAX DOSE:15MG/D
     Route: 048
     Dates: start: 20100426, end: 20101001
  2. CYMBALTA [Concomitant]

REACTIONS (1)
  - TARDIVE DYSKINESIA [None]
